FAERS Safety Report 25481277 (Version 1)
Quarter: 2025Q2

REPORT INFORMATION
  Report Type: Spontaneous
  Country: US (occurrence: US)
  Receive Date: 20250626
  Receipt Date: 20250626
  Transmission Date: 20250716
  Serious: No
  Sender: ABBVIE
  Company Number: US-ABBVIE-6341229

PATIENT

DRUGS (1)
  1. ARMOUR THYROID [Suspect]
     Active Substance: THYROID, PORCINE
     Indication: Hypothyroidism
     Route: 048

REACTIONS (6)
  - Hair texture abnormal [Unknown]
  - Palpitations [Unknown]
  - Brain fog [Unknown]
  - Amnesia [Unknown]
  - Fatigue [Unknown]
  - Alopecia [Unknown]
